FAERS Safety Report 7827315-9 (Version None)
Quarter: 2011Q4

REPORT INFORMATION
  Report Type: 
  Country: None (occurrence: None)
  Receive Date: 20111020
  Receipt Date: 20111011
  Transmission Date: 20120403
  Serious: Yes (Hospitalization, Other)
  Sender: FDA-Public Use
  Company Number: TH-PFIZER INC-2011250875

PATIENT
  Age: 85 Year
  Sex: Female

DRUGS (9)
  1. LYRICA [Suspect]
     Indication: BACK PAIN
     Dosage: 75 MG, 1X/DAY
     Route: 048
     Dates: start: 20111008, end: 20111011
  2. ASPIRIN [Concomitant]
     Indication: ANTIPLATELET THERAPY
     Dosage: 81 MG, 1X/DAY
     Route: 048
  3. ORPHENADRINE CITRATE [Suspect]
     Indication: MUSCLE RELAXANT THERAPY
     Dosage: 100 MG, 3X/DAY
     Route: 048
     Dates: start: 20111008, end: 20111011
  4. VASTAREL [Concomitant]
     Indication: CARDIAC DISORDER
     Dosage: 35 MG, 2X/DAY
     Route: 048
  5. VITAMIN B 1-6-12 [Concomitant]
     Indication: SUPPLEMENTATION THERAPY
     Dosage: 1 TABLET, ONCE DAILY
     Route: 048
  6. CODEINE PHOSPHATE/PARACETAMOL [Suspect]
     Indication: BACK PAIN
     Dosage: 1 TABLET, 2 TIMES DAILY
     Route: 048
     Dates: start: 20111008, end: 20111011
  7. FENOFIBRATE [Concomitant]
     Indication: HYPERLIPIDAEMIA
     Dosage: 100 MG, 2X/DAY
     Route: 048
  8. FOLIC ACID [Concomitant]
     Indication: SUPPLEMENTATION THERAPY
     Dosage: 5 MG, 1X/DAY
     Route: 048
  9. CELEBREX [Suspect]
     Indication: BACK PAIN
     Dosage: 200 MG, 1X/DAY
     Route: 048
     Dates: start: 20111008, end: 20111011

REACTIONS (5)
  - TREMOR [None]
  - SPEECH DISORDER [None]
  - DISORIENTATION [None]
  - HALLUCINATION [None]
  - BLOOD GLUCOSE DECREASED [None]
